FAERS Safety Report 9301935 (Version 1)
Quarter: 2013Q2

REPORT INFORMATION
  Report Type: Spontaneous
  Country: TR (occurrence: TR)
  Receive Date: 20130521
  Receipt Date: 20130521
  Transmission Date: 20140414
  Serious: Yes (Congenital Anomaly, Other)
  Sender: FDA-Public Use
  Company Number: TR-ACTAVIS-2013-09166

PATIENT
  Sex: Female

DRUGS (3)
  1. LAMOTRIGINE (UNKNOWN) [Suspect]
     Indication: CONVULSION
     Dosage: 100 MG, DAILY
     Route: 064
  2. CARBAMAZEPINE (UNKNOWN) [Suspect]
     Indication: CONVULSION
     Dosage: 1000 MG, DAILY
     Route: 064
  3. OXCARBAZEPINE [Interacting]
     Indication: CONVULSION
     Dosage: 1200 MG, DAILY
     Route: 064

REACTIONS (5)
  - Dysmorphism [Not Recovered/Not Resolved]
  - Low set ears [Not Recovered/Not Resolved]
  - Micrognathia [Not Recovered/Not Resolved]
  - Limb malformation [Not Recovered/Not Resolved]
  - Foetal exposure during pregnancy [Not Recovered/Not Resolved]
